FAERS Safety Report 17847721 (Version 1)
Quarter: 2020Q2

REPORT INFORMATION
  Report Type: Spontaneous
  Country: US (occurrence: US)
  Receive Date: 20200601
  Receipt Date: 20200601
  Transmission Date: 20200714
  Serious: Yes (Other)
  Sender: FDA-Public Use
  Company Number: US-MALLINCKRODT-T202002243

PATIENT
  Sex: Female
  Weight: 64 kg

DRUGS (2)
  1. H.P. ACTHAR [Suspect]
     Active Substance: CORTICOTROPIN
     Indication: NEPHROTIC SYNDROME
     Dosage: 40 UNITS (0.5 ML) TWO TIMES A WEEK, AS DIRECTED
     Route: 058
     Dates: start: 20200416
  2. H.P. ACTHAR [Suspect]
     Active Substance: CORTICOTROPIN
     Indication: GLOMERULONEPHRITIS MEMBRANOPROLIFERATIVE

REACTIONS (3)
  - Taste disorder [Unknown]
  - Pleural effusion [Not Recovered/Not Resolved]
  - Thoracic cavity drainage [Not Recovered/Not Resolved]

NARRATIVE: CASE EVENT DATE: 2020
